FAERS Safety Report 10900239 (Version 1)
Quarter: 2015Q1

REPORT INFORMATION
  Report Type: Report from Study
  Country: US (occurrence: US)
  Receive Date: 20150310
  Receipt Date: 20150310
  Transmission Date: 20150721
  Serious: Yes (Death)
  Sender: FDA-Public Use
  Company Number: US-ROCHE-1548807

PATIENT
  Age: 59 Year
  Sex: Female
  Weight: 100.2 kg

DRUGS (7)
  1. SYNTHROID [Concomitant]
     Active Substance: LEVOTHYROXINE SODIUM
  2. HCTZ [Concomitant]
     Active Substance: HYDROCHLOROTHIAZIDE
  3. COZAAR [Concomitant]
     Active Substance: LOSARTAN POTASSIUM
  4. DOCETAXEL. [Suspect]
     Active Substance: DOCETAXEL
     Indication: BREAST CANCER
     Route: 042
     Dates: start: 20141223
  5. CYCLOPHOSPHAMIDE. [Suspect]
     Active Substance: CYCLOPHOSPHAMIDE
     Indication: BREAST CANCER
     Route: 042
     Dates: start: 20141223
  6. TRASTUZUMAB [Suspect]
     Active Substance: TRASTUZUMAB
     Indication: BREAST CANCER
     Dosage: LAST DOSE PRIOR TO SAE: 23/DEC/2014
     Route: 042
     Dates: start: 20141223
  7. TRASTUZUMAB [Suspect]
     Active Substance: TRASTUZUMAB
     Route: 042

REACTIONS (1)
  - Enterocolitis [Fatal]

NARRATIVE: CASE EVENT DATE: 20150102
